FAERS Safety Report 10483607 (Version 1)
Quarter: 2014Q3

REPORT INFORMATION
  Report Type: Spontaneous
  Country: US (occurrence: None)
  Receive Date: 20140929
  Receipt Date: 20140929
  Transmission Date: 20150326
  Serious: Yes (Other)
  Sender: FDA-Public Use
  Company Number: None

PATIENT
  Age: 62 Year
  Sex: Female
  Weight: 95.26 kg

DRUGS (4)
  1. MILK OF MAG [Concomitant]
  2. PHOZYME [Concomitant]
  3. METOLAZONE. [Suspect]
     Active Substance: METOLAZONE
     Indication: RENAL FAILURE
     Route: 048
     Dates: start: 20131121, end: 20140701
  4. ZYRTEC [Concomitant]
     Active Substance: CETIRIZINE HYDROCHLORIDE

REACTIONS (5)
  - Product quality issue [None]
  - Product substitution issue [None]
  - Drug effect decreased [None]
  - Renal impairment [None]
  - Urine flow decreased [None]

NARRATIVE: CASE EVENT DATE: 20130121
